FAERS Safety Report 7908710-6 (Version None)
Quarter: 2011Q4

REPORT INFORMATION
  Report Type: 
  Country: None (occurrence: None)
  Receive Date: 20111111
  Receipt Date: 20111107
  Transmission Date: 20120403
  Serious: Yes (Hospitalization)
  Sender: FDA-Public Use
  Company Number: FR-BAYER-2011-087395

PATIENT
  Age: 47 Year
  Sex: Male

DRUGS (1)
  1. BETASERON [Suspect]
     Indication: MULTIPLE SCLEROSIS
     Dosage: 8 DF, UNK
     Route: 058
     Dates: start: 20060101

REACTIONS (6)
  - INFECTION [None]
  - INJECTION SITE INFECTION [None]
  - FISTULA [None]
  - ERYTHEMA [None]
  - ABSCESS [None]
  - PYREXIA [None]
